FAERS Safety Report 25728242 (Version 1)
Quarter: 2025Q3

REPORT INFORMATION
  Report Type: Spontaneous
  Country: AU (occurrence: AU)
  Receive Date: 20250826
  Receipt Date: 20250826
  Transmission Date: 20251021
  Serious: Yes (Other)
  Sender: SANDOZ
  Company Number: AU-ADIENNEP-2024AD000454

PATIENT
  Age: 1 Year

DRUGS (5)
  1. ALEMTUZUMAB [Suspect]
     Active Substance: ALEMTUZUMAB
     Indication: Allogenic stem cell transplantation
     Route: 041
  2. ALEMTUZUMAB [Suspect]
     Active Substance: ALEMTUZUMAB
     Indication: Immunomodulatory therapy
  3. FLUDARABINE PHOSPHATE [Suspect]
     Active Substance: FLUDARABINE PHOSPHATE
     Indication: Allogenic stem cell transplantation
     Route: 065
  4. THIOTEPA [Suspect]
     Active Substance: THIOTEPA
     Indication: Allogenic stem cell transplantation
     Route: 065
  5. TREOSULFAN [Suspect]
     Active Substance: TREOSULFAN
     Indication: Allogenic stem cell transplantation
     Route: 065

REACTIONS (1)
  - Venoocclusive liver disease [Recovered/Resolved]
